FAERS Safety Report 26027055 (Version 3)
Quarter: 2025Q4

REPORT INFORMATION
  Report Type: Spontaneous
  Country: US (occurrence: US)
  Receive Date: 20251111
  Receipt Date: 20251125
  Transmission Date: 20260117
  Serious: No
  Sender: ABBVIE
  Company Number: US-ABBVIE-6536227

PATIENT
  Age: 55 Year
  Sex: Male
  Weight: 74.842 kg

DRUGS (6)
  1. VYALEV [Suspect]
     Active Substance: FOSCARBIDOPA\FOSLEVODOPA
     Indication: Parkinson^s disease
     Dosage: FREQUENCY TEXT: 24-HR INFUSION
     Route: 058
     Dates: start: 20251110
  2. VYALEV [Suspect]
     Active Substance: FOSCARBIDOPA\FOSLEVODOPA
     Dosage: LOW RATE: 0.30ML/HR, BASE RATE: 0.36ML/HR, HIGH RATE: 0.38ML/HR, EXTRA DOSE: 1.15ML/HR, FREQUENCY...
     Route: 058
     Dates: start: 20251029, end: 20251105
  3. VYALEV [Suspect]
     Active Substance: FOSCARBIDOPA\FOSLEVODOPA
     Dosage: LOW RATE: 0.30ML/HR, BASE RATE: 0.37ML/HR, HIGH RATE: 0.39ML/HR, EXTRA DOSE: 1.15ML/HR, FREQUENCY...
     Route: 058
     Dates: start: 20251105, end: 20251110
  4. LISINOPRIL [Concomitant]
     Active Substance: LISINOPRIL
     Indication: Blood pressure measurement
     Dosage: 10 MILLIGRAM
  5. NUPLAZID [Concomitant]
     Active Substance: PIMAVANSERIN TARTRATE
     Indication: Parkinson^s disease
     Dosage: 34 MILLIGRAM
     Route: 048
  6. QUETIAPINE [Concomitant]
     Active Substance: QUETIAPINE
     Indication: Sleep disorder
     Dosage: 25 MILLIGRAM

REACTIONS (3)
  - Movement disorder [Recovering/Resolving]
  - Musculoskeletal stiffness [Recovering/Resolving]
  - Muscle rigidity [Recovering/Resolving]

NARRATIVE: CASE EVENT DATE: 20251101
